FAERS Safety Report 12166721 (Version 1)
Quarter: 2016Q1

REPORT INFORMATION
  Report Type: Report from Study
  Country: DE (occurrence: DE)
  Receive Date: 20160310
  Receipt Date: 20160310
  Transmission Date: 20160526
  Serious: Yes (Disabling)
  Sender: FDA-Public Use
  Company Number: DE-ROCHE-1139570

PATIENT
  Age: 58 Year
  Sex: Female
  Weight: 72 kg

DRUGS (6)
  1. CYCLOPHOSPHAMIDE. [Suspect]
     Active Substance: CYCLOPHOSPHAMIDE
     Indication: BREAST CANCER
     Dosage: LAST DSOE 860 (UNIT NOT REPORTED), LAST DOSE PRIOR TO SAE WAS ON 12 MAY 2011.
     Route: 042
     Dates: start: 20110331
  2. TRASTUZUMAB EMTANSINE [Suspect]
     Active Substance: ADO-TRASTUZUMAB EMTANSINE
     Indication: BREAST CANCER
     Dosage: LAST DOSE 262 (UNIT NOT REPORTED), LAST DOSE PRIOR TO SAE WAS ON 22 MAR 2012.
     Route: 042
     Dates: start: 20110601
  3. EPIRUBICIN [Suspect]
     Active Substance: EPIRUBICIN
     Indication: BREAST CANCER
     Dosage: LAST DOSE 172 (UNIT NOT REPORTED), LAST DOSE PRIOR TO SAE WAS ON 12 MAY 2011.
     Route: 042
     Dates: start: 20110331
  4. DOCETAXEL. [Suspect]
     Active Substance: DOCETAXEL
     Indication: BREAST CANCER
     Dosage: LAST DOSE 172 MG (UNIT NOT REPORTED), LAST DOSE PRIOR TO SAE WAS ON 06 OCT 2011.
     Route: 042
     Dates: start: 20110825
  5. TRASTUZUMAB [Suspect]
     Active Substance: TRASTUZUMAB
     Indication: BREAST CANCER
     Dosage: LAST DOSE 451 (UNIT NOT REPORTED), LAST DOSE PRIOR TO SAE WAS ON 09 DEC 2011.
     Route: 042
     Dates: start: 20110825
  6. 5-FLUOROURACIL [Suspect]
     Active Substance: FLUOROURACIL
     Indication: BREAST CANCER
     Dosage: LAST DOSE 860 (UNIT NOT REPORTED), LAST DOSE PRIOR TO SAE WAS ON 12 MAY 2011.
     Route: 042
     Dates: start: 20110331

REACTIONS (1)
  - Optic neuropathy [Not Recovered/Not Resolved]

NARRATIVE: CASE EVENT DATE: 20120710
